FAERS Safety Report 8314510-8 (Version None)
Quarter: 2012Q2

REPORT INFORMATION
  Report Type: 
  Country: None (occurrence: None)
  Receive Date: 20120426
  Receipt Date: 20120417
  Transmission Date: 20120825
  Serious: Yes (Life-Threatening)
  Sender: FDA-Public Use
  Company Number: CA-ROCHE-1060410

PATIENT
  Age: 62 Year
  Sex: Male
  Weight: 60 kg

DRUGS (17)
  1. RITUXAN [Suspect]
     Indication: PRODUCT USED FOR UNKNOWN INDICATION
     Route: 042
  2. DOXAZOSIN MESYLATE [Concomitant]
     Route: 065
  3. VINCRISTINE [Concomitant]
     Route: 065
  4. OMEPRAZOLE [Concomitant]
     Route: 065
  5. PREDNISONE TAB [Concomitant]
     Route: 065
  6. ONDANSETRON [Concomitant]
     Route: 065
  7. CYCLOPHOSPHAMIDE [Concomitant]
     Route: 065
  8. DIPHENHYDRAMINE HCL [Concomitant]
     Route: 065
  9. ACETAMINOPHEN [Concomitant]
     Route: 065
  10. DEXAMETHASONE [Concomitant]
     Route: 065
  11. DOXORUBICIN HYDROCHLORIDE [Concomitant]
     Route: 065
  12. PROCHLORPERAZINE [Concomitant]
     Route: 065
  13. ZOPICLONE [Concomitant]
     Route: 065
  14. AMIODARONE HCL [Concomitant]
     Route: 048
  15. CELEBREX [Concomitant]
     Route: 065
  16. LYRICA [Concomitant]
     Route: 065
  17. TRAVATAN [Concomitant]
     Route: 047

REACTIONS (7)
  - LARYNGEAL STENOSIS [None]
  - DYSPHAGIA [None]
  - ENLARGED UVULA [None]
  - SWELLING [None]
  - ANGIOEDEMA [None]
  - ENDOTRACHEAL INTUBATION [None]
  - DYSPNOEA [None]
